FAERS Safety Report 8306569-9 (Version None)
Quarter: 2012Q2

REPORT INFORMATION
  Report Type: 
  Country: None (occurrence: None)
  Receive Date: 20120420
  Receipt Date: 20120420
  Transmission Date: 20120825
  Serious: Yes (Other)
  Sender: FDA-Public Use
  Company Number: None

PATIENT
  Age: 53 Year
  Sex: Male
  Weight: 130.1 kg

DRUGS (1)
  1. RISPERIDONE [Suspect]
     Indication: DELUSIONAL DISORDER, UNSPECIFIED TYPE
     Dosage: 3 MG BID PO
     Route: 048
     Dates: start: 20110407, end: 20111206

REACTIONS (2)
  - HYPERGLYCAEMIA [None]
  - WEIGHT INCREASED [None]
